FAERS Safety Report 6515985-7 (Version None)
Quarter: 2009Q4

REPORT INFORMATION
  Report Type: 
  Country: None (occurrence: None)
  Receive Date: 20091211
  Receipt Date: 20090622
  Transmission Date: 20100525
  Serious: Yes (Hospitalization)
  Sender: FDA-Public Use
  Company Number: SPV1-2009-01300

PATIENT
  Age: 48 Year
  Sex: Female
  Weight: 95.2 kg

DRUGS (2)
  1. MAS           (MIXED AMPHETAMINE SALTS) [Suspect]
     Indication: ATTENTION DEFICIT/HYPERACTIVITY DISORDER
     Dosage: 20 MG, 1X/DAY: QD, ORAL
     Route: 048
     Dates: start: 20090520, end: 20090611
  2. OXYCONTIN [Concomitant]

REACTIONS (1)
  - VOMITING [None]
